FAERS Safety Report 23545597 (Version 1)
Quarter: 2024Q1

REPORT INFORMATION
  Report Type: Spontaneous
  Country: KR (occurrence: KR)
  Receive Date: 20240220
  Receipt Date: 20240220
  Transmission Date: 20240409
  Serious: Yes (Other)
  Sender: FDA-Public Use
  Company Number: KR-002147023-NVSC2024KR032756

PATIENT
  Age: 88 Year
  Sex: Male

DRUGS (2)
  1. BEOVU [Suspect]
     Active Substance: BROLUCIZUMAB-DBLL
     Indication: Neovascular age-related macular degeneration
     Dosage: 0.05 ML, (RIGHT EYE) (1 DOSE)
     Route: 031
     Dates: start: 20210628
  2. BEOVU [Suspect]
     Active Substance: BROLUCIZUMAB-DBLL
     Dosage: UNK (RIGHT EYE) (2 DOSE)
     Route: 031
     Dates: start: 20210826

REACTIONS (5)
  - Retinal vasculitis [Recovering/Resolving]
  - Visual impairment [Unknown]
  - Vitreous floaters [Unknown]
  - Keratic precipitates [Unknown]
  - Conjunctival hyperaemia [Unknown]

NARRATIVE: CASE EVENT DATE: 20210831
